FAERS Safety Report 25432647 (Version 1)
Quarter: 2025Q2

REPORT INFORMATION
  Report Type: Spontaneous
  Country: GB (occurrence: GB)
  Receive Date: 20250613
  Receipt Date: 20250613
  Transmission Date: 20250717
  Serious: Yes (Other)
  Sender: RANBAXY
  Company Number: GB-MHRA-TPP14639582C8773245YC1748421643678

PATIENT
  Age: 65 Year
  Sex: Female
  Weight: 62 kg

DRUGS (2)
  1. ROSUVASTATIN [Suspect]
     Active Substance: ROSUVASTATIN
     Indication: Ill-defined disorder
     Dosage: 10 MILLIGRAM, DAILY, TAKE ONE TABLET ONCE DAILY TO LOWER CHOLESTEROL...
     Route: 065
  2. ACIDEX ADVANCE [Concomitant]
     Indication: Ill-defined disorder
     Route: 065
     Dates: start: 20241014

REACTIONS (2)
  - Gastrooesophageal reflux disease [Recovering/Resolving]
  - Myalgia [Unknown]
